FAERS Safety Report 15967443 (Version 1)
Quarter: 2019Q1

REPORT INFORMATION
  Report Type: Spontaneous
  Country: US (occurrence: US)
  Receive Date: 20190215
  Receipt Date: 20190215
  Transmission Date: 20190418
  Serious: No
  Sender: FDA-Public Use
  Company Number: US-PERRIGO-18US011286

PATIENT
  Age: 89 Year
  Sex: Female
  Weight: 57.14 kg

DRUGS (4)
  1. CETIRIZINE HYDROCHLORIDE. [Suspect]
     Active Substance: CETIRIZINE HYDROCHLORIDE
     Indication: HYPERSENSITIVITY
     Dosage: 10 MG, QD
     Route: 048
     Dates: start: 20181007, end: 20181010
  2. ANTIHYPERTENSIVES [Concomitant]
     Active Substance: UNSPECIFIED INGREDIENT
     Indication: HYPERTENSION
     Dosage: UNK
     Route: 065
     Dates: start: 2008
  3. MELATONIN [Concomitant]
     Active Substance: MELATONIN
     Indication: INSOMNIA
     Dosage: 10 MG
     Route: 048
     Dates: start: 2017
  4. TYLENOL PM [Concomitant]
     Active Substance: ACETAMINOPHEN\DIPHENHYDRAMINE
     Indication: INSOMNIA
     Dosage: UNK, PRN
     Route: 048
     Dates: start: 201809

REACTIONS (4)
  - Somnolence [Recovered/Resolved]
  - Drug ineffective [Unknown]
  - Product administered to patient of inappropriate age [Recovered/Resolved]
  - Arthralgia [Recovered/Resolved]

NARRATIVE: CASE EVENT DATE: 20181007
